FAERS Safety Report 11178039 (Version 2)
Quarter: 2015Q2

REPORT INFORMATION
  Report Type: Report from Study
  Country: US (occurrence: US)
  Receive Date: 20150610
  Receipt Date: 20150626
  Transmission Date: 20150821
  Serious: Yes (Death, Hospitalization)
  Sender: FDA-Public Use
  Company Number: US-ACTELION-A-US2015-118835

PATIENT
  Age: 74 Year
  Sex: Female

DRUGS (13)
  1. LEVOTHYROXINE [Concomitant]
     Active Substance: LEVOTHYROXINE
     Dosage: 112 UNK, UNK
  2. MACITENTAN [Suspect]
     Active Substance: MACITENTAN
     Indication: PULMONARY ARTERIAL HYPERTENSION
     Dosage: 10 MG, QD
     Route: 048
     Dates: start: 20141217, end: 20150517
  3. DILTIAZEM [Concomitant]
     Active Substance: DILTIAZEM
     Dosage: 120 MG, UNK
  4. SAMSCA [Concomitant]
     Active Substance: TOLVAPTAN
  5. CLONAZEPAM. [Concomitant]
     Active Substance: CLONAZEPAM
     Dosage: 1 MG, UNK
  6. FUROSEMIDE. [Concomitant]
     Active Substance: FUROSEMIDE
     Dosage: 40 MG, UNK
  7. METOLAZONE. [Concomitant]
     Active Substance: METOLAZONE
     Dosage: 5 MG, UNK
  8. NEURONTIN [Concomitant]
     Active Substance: GABAPENTIN
     Dosage: 100 MG, UNK
  9. REVATIO [Concomitant]
     Active Substance: SILDENAFIL CITRATE
     Dosage: 20 MG, TID
  10. ZIPRASIDONE [Concomitant]
     Active Substance: ZIPRASIDONE
     Dosage: 60 MG, BID
  11. ATORVASTATIN [Concomitant]
     Active Substance: ATORVASTATIN
     Dosage: 40 MG, QPM
  12. GABAPENTIN. [Concomitant]
     Active Substance: GABAPENTIN
     Dosage: UNK
  13. LAMICTAL [Concomitant]
     Active Substance: LAMOTRIGINE
     Dosage: 25 MG, UNK

REACTIONS (10)
  - Death [Fatal]
  - Hyponatraemia [Unknown]
  - Fluid overload [Unknown]
  - Back pain [Unknown]
  - Fatigue [Unknown]
  - Localised oedema [Unknown]
  - Headache [Unknown]
  - Oedema peripheral [Unknown]
  - Decreased appetite [Unknown]
  - Dyspnoea [Unknown]

NARRATIVE: CASE EVENT DATE: 20150517
